FAERS Safety Report 21920295 (Version 1)
Quarter: 2023Q1

REPORT INFORMATION
  Report Type: Spontaneous
  Country: US (occurrence: None)
  Receive Date: 20230126
  Receipt Date: 20230126
  Transmission Date: 20230418
  Serious: No
  Sender: FDA-Public Use
  Company Number: None

PATIENT
  Age: 39 Year
  Sex: Female

DRUGS (1)
  1. HUMIRA [Suspect]
     Active Substance: ADALIMUMAB
     Route: 058
     Dates: start: 202211

REACTIONS (4)
  - Device defective [None]
  - Accidental exposure to product [None]
  - Exposure via skin contact [None]
  - Drug dose omission by device [None]

NARRATIVE: CASE EVENT DATE: 20230125
